FAERS Safety Report 12548099 (Version 2)
Quarter: 2016Q3

REPORT INFORMATION
  Report Type: Report from Study
  Country: BR (occurrence: BR)
  Receive Date: 20160712
  Receipt Date: 20160811
  Transmission Date: 20161109
  Serious: Yes (Disabling, Other)
  Sender: FDA-Public Use
  Company Number: PHHY2016BR094809

PATIENT
  Age: 57 Year
  Sex: Female
  Weight: 57 kg

DRUGS (4)
  1. PANTOPRAZOL [Concomitant]
     Active Substance: PANTOPRAZOLE SODIUM
     Indication: ABDOMINAL DISCOMFORT
     Dosage: 1 DF (40 MG), QD
     Route: 048
  2. LONIUM [Concomitant]
     Indication: ABDOMINAL DISCOMFORT
     Dosage: 2 DF, QD
     Route: 048
     Dates: start: 2015
  3. DOMPERIDONE [Concomitant]
     Active Substance: DOMPERIDONE
     Indication: ABDOMINAL DISCOMFORT
     Dosage: 2 DF, QD
     Route: 048
     Dates: start: 2015
  4. ACLASTA [Suspect]
     Active Substance: ZOLEDRONIC ACID
     Indication: OSTEOPOROSIS
     Dosage: 5 MG, Q12MO
     Route: 042
     Dates: start: 20150521, end: 20150521

REACTIONS (5)
  - Cough [Recovered/Resolved]
  - Malaise [Unknown]
  - Pneumonia [Recovered/Resolved]
  - Musculoskeletal chest pain [Recovering/Resolving]
  - Rib fracture [Recovered/Resolved]

NARRATIVE: CASE EVENT DATE: 201605
